FAERS Safety Report 4351207-3 (Version None)
Quarter: 2004Q2

REPORT INFORMATION
  Report Type: 
  Country: None (occurrence: None)
  Receive Date: 20040428
  Receipt Date: 20030505
  Transmission Date: 20050107
  Serious: Yes (Other)
  Sender: FDA-Public Use
  Company Number: NSADSS2003022056

PATIENT
  Sex: Female

DRUGS (2)
  1. ULTRAM [Suspect]
     Indication: PAIN
     Dosage: 6 TO 8 TABLETS DAILY
     Dates: start: 20030101
  2. PHENERGAN [Concomitant]

REACTIONS (1)
  - CONVULSION [None]
